FAERS Safety Report 25975903 (Version 1)
Quarter: 2025Q4

REPORT INFORMATION
  Report Type: Spontaneous
  Country: CN (occurrence: CN)
  Receive Date: 20251029
  Receipt Date: 20251029
  Transmission Date: 20260117
  Serious: Yes (Hospitalization)
  Sender: COHERUS
  Company Number: CN-SHANGHAI JUNSHI BIOSCIENCES CO., LTD.-CN2025016267

PATIENT

DRUGS (4)
  1. TORIPALIMAB [Suspect]
     Active Substance: TORIPALIMAB
     Indication: Nasopharyngeal cancer
     Dosage: 240 MG
     Route: 041
     Dates: start: 20250915, end: 20250915
  2. DOCETAXEL [Suspect]
     Active Substance: DOCETAXEL
     Indication: Nasopharyngeal cancer
     Dosage: 100 MG
     Route: 041
     Dates: start: 20250916, end: 20250916
  3. CISPLATIN [Suspect]
     Active Substance: CISPLATIN
     Indication: Nasopharyngeal cancer
     Dosage: 100 MG
     Route: 041
     Dates: start: 20250916, end: 20250916
  4. SODIUM CHLORIDE [Concomitant]
     Active Substance: SODIUM CHLORIDE
     Indication: Nasopharyngeal cancer
     Dosage: 100 ML
     Route: 041

REACTIONS (1)
  - Myelosuppression [Recovering/Resolving]

NARRATIVE: CASE EVENT DATE: 20250922
